FAERS Safety Report 10384123 (Version 1)
Quarter: 2014Q3

REPORT INFORMATION
  Report Type: Spontaneous
  Country: RU (occurrence: RU)
  Receive Date: 20140814
  Receipt Date: 20140814
  Transmission Date: 20150326
  Serious: Yes (Other)
  Sender: FDA-Public Use
  Company Number: PHHY2014RU099911

PATIENT
  Age: 39 Year
  Sex: Female

DRUGS (5)
  1. INDOLE-3-CARBINOL [Interacting]
     Active Substance: DIETARY SUPPLEMENT
     Dosage: 200 MG
  2. CICLOSPORIN [Suspect]
     Active Substance: CYCLOSPORINE
     Indication: IMMUNOSUPPRESSION
     Dosage: 150 MG
  3. METHYLPREDNISOLONE [Concomitant]
     Active Substance: METHYLPREDNISOLONE
     Indication: IMMUNOSUPPRESSION
     Dosage: 4 MG
  4. EPIGALLOCATECHIN GALLATE [Concomitant]
     Dosage: 200 MG DAILY
  5. MYCOPHENOLATE MOFETIL. [Concomitant]
     Active Substance: MYCOPHENOLATE MOFETIL
     Indication: IMMUNOSUPPRESSION
     Dosage: 2000 MG/DAY

REACTIONS (5)
  - Haematuria [Unknown]
  - IgA nephropathy [Unknown]
  - Endometrial hyperplasia [Unknown]
  - Drug interaction [Unknown]
  - Nephropathy toxic [Unknown]

NARRATIVE: CASE EVENT DATE: 2007
